FAERS Safety Report 8805252 (Version 2)
Quarter: 2015Q3

REPORT INFORMATION
  Report Type: Report from Study
  Country: US (occurrence: US)
  Receive Date: 20120924
  Receipt Date: 20150731
  Transmission Date: 20151125
  Serious: Yes (Death)
  Sender: FDA-Public Use
  Company Number: US-ROCHE-1126876

PATIENT
  Age: 62 Year
  Sex: Female

DRUGS (9)
  1. ABRAXANE [Suspect]
     Active Substance: PACLITAXEL
     Dosage: WEEKS 1,2 AND 3
     Route: 065
  2. LEXAPRO [Concomitant]
     Active Substance: ESCITALOPRAM OXALATE
     Route: 065
  3. NEULASTA [Concomitant]
     Active Substance: PEGFILGRASTIM
     Route: 065
  4. ABRAXANE [Suspect]
     Active Substance: PACLITAXEL
     Indication: PRODUCT USED FOR UNKNOWN INDICATION
     Dosage: WEEKS 1,2 AND 3
     Route: 065
     Dates: start: 20060321
  5. PROTONIX (UNITED STATES) [Concomitant]
     Route: 065
  6. ABRAXANE [Suspect]
     Active Substance: PACLITAXEL
     Route: 065
  7. AVASTIN [Suspect]
     Active Substance: BEVACIZUMAB
     Indication: BREAST CANCER FEMALE
     Route: 065
     Dates: start: 20060321
  8. ZOMETA [Concomitant]
     Active Substance: ZOLEDRONIC ACID
     Route: 042
  9. HEPARIN FLUSH [Concomitant]
     Dosage: DOSE 500 (UNIT NOT REPORTED) ?UNITS/5ML
     Route: 065

REACTIONS (13)
  - Rhinorrhoea [Unknown]
  - Blister [Unknown]
  - Gastrooesophageal reflux disease [Unknown]
  - Anaemia [Unknown]
  - Nausea [Unknown]
  - Depression [Unknown]
  - Pruritus [Unknown]
  - Epistaxis [Unknown]
  - Death [Fatal]
  - Fatigue [Unknown]
  - Alopecia [Unknown]
  - Thrombocytopenia [Unknown]
  - Off label use [Unknown]

NARRATIVE: CASE EVENT DATE: 20060708
